FAERS Safety Report 17842117 (Version 2)
Quarter: 2020Q3

REPORT INFORMATION
  Report Type: Report from Study
  Country: US (occurrence: US)
  Receive Date: 20200529
  Receipt Date: 20200709
  Transmission Date: 20201103
  Serious: Yes (Hospitalization, Other)
  Sender: FDA-Public Use
  Company Number: US-ACTELION-A-NJ2018-166363

PATIENT
  Age: 70 Year
  Sex: Female

DRUGS (4)
  1. FOLIC ACID. [Concomitant]
     Active Substance: FOLIC ACID
  2. SILDENAFIL CITRATE. [Concomitant]
     Active Substance: SILDENAFIL CITRATE
  3. VITAMIN D3 [Concomitant]
     Active Substance: CHOLECALCIFEROL
  4. OPSUMIT [Suspect]
     Active Substance: MACITENTAN
     Indication: PULMONARY ARTERIAL HYPERTENSION
     Dosage: 10 MG, QD
     Route: 048
     Dates: start: 20171208

REACTIONS (8)
  - Diabetes mellitus [Unknown]
  - Transfusion [Unknown]
  - Hospitalisation [Recovered/Resolved]
  - Anaemia [Unknown]
  - Haemoglobin decreased [Unknown]
  - Malaise [Unknown]
  - Glycosylated haemoglobin increased [Unknown]
  - Hypertension [Unknown]

NARRATIVE: CASE EVENT DATE: 201802
